FAERS Safety Report 20416360 (Version 1)
Quarter: 2022Q1

REPORT INFORMATION
  Report Type: Spontaneous
  Country: US (occurrence: None)
  Receive Date: 20220202
  Receipt Date: 20220202
  Transmission Date: 20220424
  Serious: Yes (Hospitalization)
  Sender: FDA-Public Use
  Company Number: None

PATIENT
  Age: 54 Year
  Sex: Female
  Weight: 52.5 kg

DRUGS (3)
  1. FLUOROURACIL [Suspect]
     Active Substance: FLUOROURACIL
     Dates: end: 20220112
  2. LEUCOVORIN CALCIUM [Suspect]
     Active Substance: LEUCOVORIN CALCIUM
     Dates: end: 20220111
  3. ELOXATIN [Suspect]
     Active Substance: OXALIPLATIN
     Dates: end: 20220111

REACTIONS (2)
  - Enteritis [None]
  - Colitis [None]

NARRATIVE: CASE EVENT DATE: 20220118
